FAERS Safety Report 6220191-X (Version None)
Quarter: 2009Q2

REPORT INFORMATION
  Report Type: 
  Country: None (occurrence: None)
  Receive Date: 20090605
  Receipt Date: 20090525
  Transmission Date: 20091009
  Serious: Yes (Hospitalization, Other)
  Sender: FDA-Public Use
  Company Number: ADE2009-0637

PATIENT
  Age: 61 Year
  Sex: Female

DRUGS (1)
  1. CEFUROXIME AXETIL [Suspect]
     Dosage: ORAL
     Route: 048

REACTIONS (8)
  - ANAPHYLACTIC SHOCK [None]
  - CHEST PAIN [None]
  - ELECTROCARDIOGRAM ST SEGMENT ELEVATION [None]
  - ERYTHEMA [None]
  - KOUNIS SYNDROME [None]
  - NAUSEA [None]
  - VERTIGO [None]
  - VOMITING [None]
